FAERS Safety Report 15998110 (Version 1)
Quarter: 2019Q1

REPORT INFORMATION
  Report Type: Report from Study
  Country: CN (occurrence: CN)
  Receive Date: 20190223
  Receipt Date: 20190223
  Transmission Date: 20190418
  Serious: Yes (Death, Other)
  Sender: FDA-Public Use
  Company Number: CN-AMGEN-CHNCT2019027166

PATIENT
  Age: 64 Year
  Sex: Female

DRUGS (17)
  1. RECOMBINANT HUMAN INSULIN [Concomitant]
     Active Substance: INSULIN HUMAN
     Indication: DIABETES MELLITUS
     Dosage: 8-10U , TID
     Route: 058
  2. ATORVASTATIN [Concomitant]
     Active Substance: ATORVASTATIN
     Indication: HYPERLIPIDAEMIA
     Dosage: 20 MG, QD
     Route: 048
  3. CINACALCET HCL [Suspect]
     Active Substance: CINACALCET HYDROCHLORIDE
     Dosage: 25 MG, UNK
     Route: 048
     Dates: start: 20180322, end: 20181015
  4. IRBESARTAN. [Concomitant]
     Active Substance: IRBESARTAN
     Indication: HYPERTENSION
     Dosage: 0.15 G, QD
     Route: 048
  5. CINACALCET HCL [Suspect]
     Active Substance: CINACALCET HYDROCHLORIDE
     Indication: HYPERPARATHYROIDISM SECONDARY
     Dosage: 25 MG, UNK
     Route: 048
     Dates: start: 20180216, end: 20180318
  6. GLYCERINE [Concomitant]
     Active Substance: GLYCERIN
     Indication: DYSCHEZIA
     Dosage: 20 ML SOS PR
  7. ASPIRIN ENTERIC COATED K.P. [Concomitant]
     Active Substance: ASPIRIN
     Indication: ARTERIOVENOUS FISTULA THROMBOSIS
     Dosage: 100 MG, QD
     Route: 048
  8. FERROUS SUCCINATE SODIUM CITRATE [Concomitant]
     Indication: NEPHROGENIC ANAEMIA
     Dosage: 0.2 G, QD
     Route: 048
  9. PROSTAGLANDIN E1 [Concomitant]
     Active Substance: ALPROSTADIL
     Indication: ARTERIOVENOUS FISTULA THROMBOSIS
     Dosage: 40 MUG, QD
     Route: 048
  10. EPO [Concomitant]
     Active Substance: ERYTHROPOIETIN
     Indication: NEPHROGENIC ANAEMIA
     Dosage: 3000 IU, 3 TIMES/WK
     Route: 042
  11. CALCITRIOL. [Concomitant]
     Active Substance: CALCITRIOL
     Indication: HYPERPARATHYROIDISM SECONDARY
     Dosage: 0.5 MUG, QD
     Route: 048
  12. TRAMADOL HYDROCHLORIDE. [Concomitant]
     Active Substance: TRAMADOL HYDROCHLORIDE
     Indication: PAIN
     Dosage: 100 MG SOS
     Route: 048
  13. CINACALCET HCL [Suspect]
     Active Substance: CINACALCET HYDROCHLORIDE
     Dosage: 50 MG, UNK
     Route: 048
     Dates: start: 20180319, end: 20180321
  14. FELODIPINE. [Concomitant]
     Active Substance: FELODIPINE
     Indication: HYPERTENSION
     Dosage: 5 MG, QD
     Route: 048
  15. CLOPIDOGREL SULFATE [Concomitant]
     Active Substance: CLOPIDOGREL BISULFATE
     Indication: ARTERIOVENOUS FISTULA THROMBOSIS
     Dosage: 75 MG, QD
     Route: 048
  16. METOPROLOL SUCCINATE. [Concomitant]
     Active Substance: METOPROLOL SUCCINATE
     Indication: HYPERTENSION
     Dosage: 25 MG QD/BID
     Route: 048
  17. NIFEDIPINE. [Concomitant]
     Active Substance: NIFEDIPINE
     Indication: HYPERTENSION
     Dosage: 30 MG, BID
     Route: 048

REACTIONS (1)
  - Acute coronary syndrome [Fatal]

NARRATIVE: CASE EVENT DATE: 20190215
